FAERS Safety Report 11604272 (Version 1)
Quarter: 2015Q4

REPORT INFORMATION
  Report Type: Report from Study
  Country: BR (occurrence: BR)
  Receive Date: 20151007
  Receipt Date: 20151007
  Transmission Date: 20160304
  Serious: Yes (Other)
  Sender: FDA-Public Use
  Company Number: PHHY2015BR119115

PATIENT
  Age: 88 Year
  Sex: Female

DRUGS (1)
  1. DIOVAN [Suspect]
     Active Substance: VALSARTAN
     Indication: HYPERTENSION
     Dosage: 8 DF, QD  (4 TABLETS IN THE MORNING, 4 TABLETS IN THE MORNING)
     Route: 065
     Dates: start: 201402

REACTIONS (1)
  - Deafness [Not Recovered/Not Resolved]
